FAERS Safety Report 12206394 (Version 1)
Quarter: 2016Q1

REPORT INFORMATION
  Report Type: Spontaneous
  Country: US (occurrence: None)
  Receive Date: 20160323
  Receipt Date: 20160323
  Transmission Date: 20160526
  Serious: No
  Sender: FDA-Public Use
  Company Number: None

PATIENT
  Age: 54 Year
  Sex: Female

DRUGS (16)
  1. CIPROFLOXACN [Concomitant]
     Active Substance: CIPROFLOXACIN
  2. CYMBALTA [Concomitant]
     Active Substance: DULOXETINE HYDROCHLORIDE
  3. HYDROCO/APAP [Concomitant]
     Active Substance: ACETAMINOPHEN\HYDROCODONE
  4. MELOXICAM. [Concomitant]
     Active Substance: MELOXICAM
  5. LOW-OGESTREL [Concomitant]
     Active Substance: ETHINYL ESTRADIOL\NORGESTREL
  6. SIMVASTATIN. [Concomitant]
     Active Substance: SIMVASTATIN
  7. CEPHALEXIN. [Concomitant]
     Active Substance: CEPHALEXIN
  8. ZOLPIDEM [Concomitant]
     Active Substance: ZOLPIDEM\ZOLPIDEM TARTRATE
  9. COLYTE/FLAVR SOL PACKS [Concomitant]
  10. LOVAZA [Concomitant]
     Active Substance: OMEGA-3-ACID ETHYL ESTERS
  11. METHOTREXATE [Concomitant]
     Active Substance: METHOTREXATE
  12. ENBREL [Suspect]
     Active Substance: ETANERCEPT
     Indication: RHEUMATOID ARTHRITIS
     Route: 058
     Dates: start: 20081013
  13. AMOXICILLIN. [Concomitant]
     Active Substance: AMOXICILLIN
  14. IBUPROFEN. [Concomitant]
     Active Substance: IBUPROFEN
  15. PREMARIN VAGINAL [Concomitant]
     Active Substance: ESTROGENS, CONJUGATED
  16. SHARPS CONT MIS HOME [Concomitant]

REACTIONS (2)
  - Rheumatoid arthritis [None]
  - Drug dose omission [None]

NARRATIVE: CASE EVENT DATE: 20160314
